FAERS Safety Report 13050729 (Version 1)
Quarter: 2016Q4

REPORT INFORMATION
  Report Type: Spontaneous
  Country: US (occurrence: US)
  Receive Date: 20161221
  Receipt Date: 20161221
  Transmission Date: 20170207
  Serious: Yes (Other)
  Sender: FDA-Public Use
  Company Number: US-ENDO PHARMACEUTICALS INC.-2016-004064

PATIENT
  Sex: Female

DRUGS (1)
  1. OPANA ER [Suspect]
     Active Substance: OXYMORPHONE HYDROCHLORIDE
     Indication: OESOPHAGEAL PAIN
     Dosage: 40MG TABLET PLUS 30MG TABLET TOTALLING 70MG, TWICE DAILY
     Route: 048
     Dates: start: 2015

REACTIONS (1)
  - Vomiting [Not Recovered/Not Resolved]

NARRATIVE: CASE EVENT DATE: 2015
